FAERS Safety Report 5732634-6 (Version None)
Quarter: 2008Q2

REPORT INFORMATION
  Report Type: 
  Country: None (occurrence: None)
  Receive Date: 20080507
  Receipt Date: 20080424
  Transmission Date: 20081010
  Serious: No
  Sender: FDA-Public Use
  Company Number: 233664J08USA

PATIENT
  Age: 42 Year
  Sex: Female

DRUGS (4)
  1. REBIF [Suspect]
     Indication: MULTIPLE SCLEROSIS
     Dosage: 44 MCG, 3 IN 1 WEEKS, SUBCUTANEOUS
     Route: 058
     Dates: start: 20070401, end: 20071001
  2. SOLU-MEDROL [Concomitant]
  3. LISINOPRIL [Concomitant]
  4. COREG [Concomitant]

REACTIONS (1)
  - HEPATIC ENZYME INCREASED [None]
